FAERS Safety Report 12207318 (Version 1)
Quarter: 2016Q1

REPORT INFORMATION
  Report Type: Spontaneous
  Country: US (occurrence: US)
  Receive Date: 20160324
  Receipt Date: 20160324
  Transmission Date: 20160526
  Serious: Yes (Death, Hospitalization, Other)
  Sender: FDA-Public Use
  Company Number: US-JNJFOC-20160319049

PATIENT
  Age: 79 Year
  Sex: Male
  Weight: 78.5 kg

DRUGS (7)
  1. TYVASO [Suspect]
     Active Substance: TREPROSTINIL
     Indication: PRODUCT USED FOR UNKNOWN INDICATION
     Route: 065
  2. ADEMPAS [Suspect]
     Active Substance: RIOCIGUAT
     Indication: PULMONARY ARTERIAL HYPERTENSION
     Route: 065
  3. ADEMPAS [Suspect]
     Active Substance: RIOCIGUAT
     Indication: PULMONARY ARTERIAL HYPERTENSION
     Route: 065
  4. ADEMPAS [Suspect]
     Active Substance: RIOCIGUAT
     Indication: PULMONARY ARTERIAL HYPERTENSION
     Route: 065
     Dates: start: 20150520
  5. ADEMPAS [Suspect]
     Active Substance: RIOCIGUAT
     Indication: PULMONARY ARTERIAL HYPERTENSION
     Route: 065
  6. LETAIRIS [Concomitant]
     Active Substance: AMBRISENTAN
     Route: 065
  7. XARELTO [Suspect]
     Active Substance: RIVAROXABAN
     Indication: PRODUCT USED FOR UNKNOWN INDICATION
     Route: 048

REACTIONS (12)
  - Upper limb fracture [Unknown]
  - Back injury [Unknown]
  - Fall [Unknown]
  - Head injury [Unknown]
  - Chest pain [Unknown]
  - Fatigue [Unknown]
  - Dysgeusia [Unknown]
  - Dyspnoea [Unknown]
  - Rotator cuff syndrome [Unknown]
  - Chest discomfort [Unknown]
  - Subarachnoid haemorrhage [Fatal]
  - Fall [Unknown]

NARRATIVE: CASE EVENT DATE: 20160114
